FAERS Safety Report 24929990 (Version 2)
Quarter: 2025Q2

REPORT INFORMATION
  Report Type: Spontaneous
  Country: US (occurrence: US)
  Receive Date: 20250205
  Receipt Date: 20250401
  Transmission Date: 20250717
  Serious: Yes (Hospitalization, Other)
  Sender: SANOFI AVENTIS
  Company Number: US-SA-2025SA035786

PATIENT
  Age: 63 Year
  Sex: Female
  Weight: 64.55 kg

DRUGS (11)
  1. DUPIXENT [Suspect]
     Active Substance: DUPILUMAB
     Indication: Seasonal allergy
     Dosage: 300 MG, QOW
     Route: 058
  2. DUPIXENT [Suspect]
     Active Substance: DUPILUMAB
     Indication: Asthma
  3. MUCINEX [Concomitant]
     Active Substance: GUAIFENESIN
  4. ADVIL [Concomitant]
     Active Substance: IBUPROFEN
  5. PREDNISOLONE [Concomitant]
     Active Substance: PREDNISOLONE
  6. SINGULAIR [Concomitant]
     Active Substance: MONTELUKAST SODIUM
  7. TRELEGY ELLIPTA [Concomitant]
     Active Substance: FLUTICASONE FUROATE\UMECLIDINIUM BROMIDE\VILANTEROL TRIFENATATE
  8. FLONASE ALLERGY RELIEF [Concomitant]
     Active Substance: FLUTICASONE PROPIONATE
  9. ESTRADIOL [Concomitant]
     Active Substance: ESTRADIOL
  10. VITAMIN D3 [Concomitant]
     Active Substance: CHOLECALCIFEROL
  11. ALBUTEROL SULFATE [Concomitant]
     Active Substance: ALBUTEROL SULFATE

REACTIONS (4)
  - Atypical pneumonia [Unknown]
  - Pulmonary embolism [Unknown]
  - Pulmonary thrombosis [Unknown]
  - Product use in unapproved indication [Unknown]

NARRATIVE: CASE EVENT DATE: 20250101
